FAERS Safety Report 9881986 (Version 3)
Quarter: 2014Q2

REPORT INFORMATION
  Report Type: Report from Study
  Country: TW (occurrence: TW)
  Receive Date: 20140207
  Receipt Date: 20140606
  Transmission Date: 20141212
  Serious: Yes (Hospitalization, Other)
  Sender: FDA-Public Use
  Company Number: TW-BRISTOL-MYERS SQUIBB COMPANY-20124186

PATIENT
  Age: 64 Year
  Sex: Female

DRUGS (5)
  1. ORENCIA [Suspect]
     Indication: RHEUMATOID ARTHRITIS
     Dosage: ALSO ON 17DEC13 (TOTAL 6 VIALS) ,31DEC13
     Route: 041
     Dates: start: 20131203, end: 20131231
  2. CELEBREX [Suspect]
     Route: 048
  3. PREDNISOLONE [Concomitant]
  4. FERRUM [Concomitant]
     Dosage: TABS
     Route: 048
  5. BOKEY [Concomitant]
     Route: 048

REACTIONS (5)
  - Haematochezia [Recovered/Resolved]
  - Gastric ulcer [Unknown]
  - Upper gastrointestinal haemorrhage [Recovering/Resolving]
  - Intestinal haemorrhage [Unknown]
  - Anaemia [Unknown]
